FAERS Safety Report 9321641 (Version 1)
Quarter: 2013Q2

REPORT INFORMATION
  Report Type: Spontaneous
  Country: BR (occurrence: None)
  Receive Date: 20130529
  Receipt Date: 20130529
  Transmission Date: 20140414
  Serious: Yes (Hospitalization)
  Sender: FDA-Public Use
  Company Number: B0894376B

PATIENT
  Sex: Male

DRUGS (6)
  1. AZATHIOPRINE [Suspect]
     Indication: IMMUNOSUPPRESSION
     Dosage: 100/ PER DAY/ TRANSPLACENTARY
     Route: 064
  2. CYCLOSPORIN [Suspect]
     Indication: IMMUNOSUPPRESSION
     Dosage: 250 MG/ PER DAY/ TRANSPLACENTARY
     Route: 064
  3. CEPHALEXIN [Suspect]
     Indication: IMMUNOSUPPRESSION
     Route: 064
  4. NITROFURANTOIN [Suspect]
     Indication: URINARY TRACT INFECTION
     Route: 064
  5. CEFUROXIME SODIUM [Suspect]
     Indication: URINARY TRACT INFECTION
     Route: 064
  6. BETAMETHASONE [Suspect]
     Indication: PRENATAL CARE
     Route: 064

REACTIONS (5)
  - Low birth weight baby [None]
  - Premature baby [None]
  - Jaundice neonatal [None]
  - Neonatal respiratory distress syndrome [None]
  - Maternal drugs affecting foetus [None]
